FAERS Safety Report 13848837 (Version 1)
Quarter: 2017Q3

REPORT INFORMATION
  Report Type: Spontaneous
  Country: US (occurrence: US)
  Receive Date: 20170809
  Receipt Date: 20170809
  Transmission Date: 20171127
  Serious: No
  Sender: FDA-Public Use
  Company Number: None

PATIENT
  Sex: Female

DRUGS (1)
  1. MOMETASONE FUROATE MONOHYDRATE NASAL SPRAY [Suspect]
     Active Substance: MOMETASONE FUROATE MONOHYDRATE
     Indication: RHINITIS ALLERGIC
     Dosage: DATES OF USE - USED FOR ~ 2 WEEKS?DOSE - 2 SPRAYS PER NOSTRIL
     Route: 045

REACTIONS (2)
  - Pruritus [None]
  - Drug ineffective [None]
